FAERS Safety Report 4407322-9 (Version None)
Quarter: 2004Q3

REPORT INFORMATION
  Report Type: 
  Country: None (occurrence: None)
  Receive Date: 20040726
  Receipt Date: 20040722
  Transmission Date: 20050211
  Serious: Yes (Death, Hospitalization)
  Sender: FDA-Public Use
  Company Number: US-BRISTOL-MYERS SQUIBB COMPANY-12647939

PATIENT
  Age: 64 Year
  Sex: Male

DRUGS (24)
  1. PACLITAXEL [Suspect]
     Indication: NON-SMALL CELL LUNG CANCER
     Dosage: 225 MG/M^2; THERAPY DATES: 20-APR-2004 TO 01-JUN-2004
     Route: 042
     Dates: start: 20040420, end: 20040601
  2. CARBOPLATIN [Suspect]
     Indication: NON-SMALL CELL LUNG CANCER
     Dosage: AUC6
     Route: 042
     Dates: start: 20040420, end: 20040601
  3. PREDNISONE [Concomitant]
     Dates: start: 20040406
  4. ATENOLOL [Concomitant]
     Dates: start: 19970101
  5. ATORVASTATIN CALCIUM [Concomitant]
     Dates: start: 20000101
  6. ASPIRIN [Concomitant]
     Dates: start: 19970101
  7. TRIAMCINOLONE ACETONIDE [Concomitant]
     Dates: start: 19970101
  8. ALBUTEROL SULFATE [Concomitant]
     Dates: start: 19970101
  9. OXYCODONE HCL [Concomitant]
     Dates: start: 20040413
  10. SERETIDE [Concomitant]
     Dates: start: 19970101
  11. HYDROCODONE [Concomitant]
     Dates: start: 20040101
  12. PALONOSETRON [Concomitant]
     Dates: start: 20040101
  13. PROCHLORPERAZINE EDISYLATE [Concomitant]
     Dates: start: 20040101
  14. DARBEPOETIN ALFA [Concomitant]
     Dates: start: 20040101
  15. SENNA [Concomitant]
     Dates: start: 20040101
  16. ALUMINUM HYDROXIDE + MAGNESIUM HYDROXIDE [Concomitant]
     Dates: start: 20040101
  17. DIPHENHYDRAMINE [Concomitant]
     Dates: start: 20040101
  18. LIDOCAINE [Concomitant]
     Dates: start: 20040101
  19. GELCLAIR [Concomitant]
     Dates: start: 20040101
  20. ONDANSETRON HCL [Concomitant]
     Dates: start: 20040101
  21. CIPROFLOXACIN [Concomitant]
     Dates: start: 20040514, end: 20040527
  22. LOMOTIL [Concomitant]
     Dates: start: 20040101
  23. DEXAMETHASONE [Concomitant]
     Indication: PREMEDICATION
     Dosage: DAY 1 OF EACH CYCLE
  24. CIMETIDINE [Concomitant]
     Indication: PREMEDICATION
     Dosage: DAY 1 OF CYCLE

REACTIONS (2)
  - FEBRILE NEUTROPENIA [None]
  - PNEUMONIA [None]
